FAERS Safety Report 7025198-0 (Version None)
Quarter: 2010Q4

REPORT INFORMATION
  Report Type: 
  Country: None (occurrence: None)
  Receive Date: 20101001
  Receipt Date: 20100924
  Transmission Date: 20110411
  Serious: Yes (Other)
  Sender: FDA-Public Use
  Company Number: US-JNJCH-2010020914

PATIENT
  Age: 38 Year
  Sex: Female
  Weight: 90.7 kg

DRUGS (2)
  1. LISTERINE ZERO MOUTHWASH CLEAN MINT [Suspect]
     Indication: STOMATITIS
     Dosage: TEXT:HALF CAPFUL TWICE PER DAY
     Route: 048
     Dates: start: 20100906, end: 20100911
  2. SYNTHROID [Concomitant]
     Indication: HYPOTHYROIDISM
     Dosage: TEXT:0.150 MCG/1X
     Route: 065
     Dates: start: 20050101

REACTIONS (3)
  - BLISTER [None]
  - OFF LABEL USE [None]
  - SWELLING FACE [None]
